FAERS Safety Report 10241958 (Version 1)
Quarter: 2014Q2

REPORT INFORMATION
  Report Type: Spontaneous
  Country: PR (occurrence: PR)
  Receive Date: 20140617
  Receipt Date: 20140617
  Transmission Date: 20141212
  Serious: No
  Sender: FDA-Public Use
  Company Number: PR-LUNDBECK-DKLU1100306

PATIENT
  Age: 1 Year
  Sex: Female

DRUGS (2)
  1. SABRIL (FOR ORAL SOLUTION) [Suspect]
     Indication: PRODUCT USED FOR UNKNOWN INDICATION
     Dates: start: 2014
  2. SABRIL (FOR ORAL SOLUTION) [Suspect]
     Dates: start: 2014

REACTIONS (2)
  - Muscle spasms [Unknown]
  - Drug ineffective [Unknown]
